FAERS Safety Report 6736755-0 (Version None)
Quarter: 2010Q2

REPORT INFORMATION
  Report Type: 
  Country: None (occurrence: None)
  Receive Date: 20100521
  Receipt Date: 20100514
  Transmission Date: 20101027
  Serious: Yes (Other)
  Sender: FDA-Public Use
  Company Number: US-PFIZER INC-2010061803

PATIENT
  Sex: Female
  Weight: 59 kg

DRUGS (8)
  1. CHANTIX [Suspect]
     Indication: SMOKING CESSATION THERAPY
     Dosage: UNK
     Route: 048
     Dates: start: 20080101, end: 20080101
  2. CHANTIX [Suspect]
     Dosage: UNK
     Dates: start: 20100201
  3. OMEPRAZOLE [Concomitant]
     Indication: ABDOMINAL DISCOMFORT
     Dosage: UNK
  4. HYDROCODONE [Concomitant]
     Indication: PAIN
     Dosage: UNK
  5. TRANXENE [Concomitant]
     Indication: ANXIETY
     Dosage: UNK
  6. DIPHENOXYLATE HCL AND ATROPINE SULFATE [Concomitant]
     Indication: ABDOMINAL DISCOMFORT
     Dosage: UNK
  7. CYMBALTA [Concomitant]
     Dosage: UNK
  8. ALLEGRA [Concomitant]
     Dosage: UNK

REACTIONS (1)
  - HYPERTENSION [None]
